FAERS Safety Report 11824334 (Version 1)
Quarter: 2015Q4

REPORT INFORMATION
  Report Type: Spontaneous
  Country: US (occurrence: US)
  Receive Date: 20151210
  Receipt Date: 20151210
  Transmission Date: 20160305
  Serious: Yes (Death)
  Sender: FDA-Public Use
  Company Number: US-PFIZER INC-2015426816

PATIENT
  Age: 46 Year
  Sex: Female

DRUGS (5)
  1. AMLODIPINE BESILATE [Suspect]
     Active Substance: AMLODIPINE BESYLATE
     Dosage: UNK
     Route: 048
  2. GABAPENTIN. [Suspect]
     Active Substance: GABAPENTIN
     Route: 048
  3. BACLOFEN. [Suspect]
     Active Substance: BACLOFEN
     Route: 048
  4. CELECOXIB. [Suspect]
     Active Substance: CELECOXIB
     Route: 048
  5. METOPROLOL [Suspect]
     Active Substance: METOPROLOL
     Route: 048

REACTIONS (1)
  - Completed suicide [Fatal]

NARRATIVE: CASE EVENT DATE: 2014
